FAERS Safety Report 12450330 (Version 1)
Quarter: 2016Q2

REPORT INFORMATION
  Report Type: Spontaneous
  Country: US (occurrence: US)
  Receive Date: 20160609
  Receipt Date: 20160609
  Transmission Date: 20160815
  Serious: No
  Sender: FDA-Public Use
  Company Number: US-PFIZER INC-2016214292

PATIENT
  Age: 86 Year
  Sex: Female
  Weight: 74.8 kg

DRUGS (30)
  1. NORVASC [Concomitant]
     Active Substance: AMLODIPINE BESYLATE
     Dosage: 10 MG, 1X/DAY (IN THE EVENING)
     Route: 048
     Dates: start: 20160215
  2. ASPIRIN 81 [Concomitant]
     Active Substance: ASPIRIN
     Dosage: 81 MG, 1X/DAY
     Route: 048
     Dates: start: 20160224
  3. VENTOLIN [Concomitant]
     Active Substance: ALBUTEROL SULFATE
     Indication: DYSPNOEA
     Dosage: UNK, AS NEEDED (INHALE 2 PUFFS ORALLY EVERY 4 TO 6 HOURS AS NEEDED)
     Route: 048
     Dates: start: 20150415
  4. OSCAL D [Concomitant]
     Active Substance: CALCIUM CARBONATE\CHOLECALCIFEROL
     Dosage: 1 DF, 2X/DAY (500 MG-200 UNIT )
     Route: 048
     Dates: start: 20150406
  5. RESTASIS [Concomitant]
     Active Substance: CYCLOSPORINE
     Dosage: 1 DF, 2X/DAY (PLACE 1 DROP INTO THE RIGHT EYE 2 TIMES A DAY)
     Route: 047
  6. LUTEIN [Concomitant]
     Active Substance: LUTEIN
     Dosage: 10 MG, 1X/DAY
     Route: 048
  7. JOINT FOOD /01430901/ [Concomitant]
     Dosage: 1 DF, 2X/DAY (500 MG OF GLUCOSAMINE , 400 MG OF CHONDROITIN SULFATE)
     Route: 048
  8. CENTRUM SILVER /02363801/ [Concomitant]
     Active Substance: MINERALS\VITAMINS
     Dosage: 1 DF, 1X/DAY
     Route: 048
  9. PROAIR HFA [Concomitant]
     Active Substance: ALBUTEROL SULFATE
     Indication: DYSPNOEA
     Dosage: UNK, AS NEEDED (INHALE 2 PUFFS ORALLY EVERY 4 TO 6 HOURS AS NEEDED)
     Route: 048
     Dates: start: 20150415
  10. CRESTOR [Concomitant]
     Active Substance: ROSUVASTATIN CALCIUM
     Dosage: 10 MG, 1X/DAY (AKE 1 TABLET BY MOUTH EVERY NIGHT AT BEDTIME)
     Route: 048
     Dates: start: 20150406
  11. STOOL SOFTENER [Concomitant]
     Active Substance: DOCUSATE CALCIUM
     Indication: CONSTIPATION
     Dosage: 1 DF, AS NEEDED
     Route: 048
  12. PRILOSEC [Concomitant]
     Active Substance: OMEPRAZOLE MAGNESIUM
     Dosage: 20 MG, ALTERNATE DAY
     Route: 048
     Dates: start: 20160204
  13. PROAIR HFA [Concomitant]
     Active Substance: ALBUTEROL SULFATE
     Indication: WHEEZING
  14. CLARITIN [Concomitant]
     Active Substance: LORATADINE
     Indication: HYPERSENSITIVITY
     Dosage: 10 MG, AS NEEDED (1 TIME A DAY AS NEEDED)
     Route: 048
  15. TOBRADEX [Concomitant]
     Active Substance: DEXAMETHASONE\TOBRAMYCIN
     Dosage: UNK, AS NEEDED (APPLY TO LID AND LASHES OS AT BEDTIME AS NEEDED)
  16. VITAMIN D3 [Concomitant]
     Active Substance: CHOLECALCIFEROL
     Dosage: 1000 IU, 1X/DAY
     Route: 048
  17. AMBIEN [Concomitant]
     Active Substance: ZOLPIDEM TARTRATE
     Indication: INSOMNIA
     Dosage: 5 MG, AS NEEDED (AT BEDTIME AS NEEDED)
     Route: 048
     Dates: start: 20160127
  18. PROVENTIL [Concomitant]
     Active Substance: ALBUTEROL
     Indication: DYSPNOEA
     Dosage: UNK, AS NEEDED (INHALE 2 PUFFS ORALLY EVERY 4 TO 6 HOURS AS NEEDED)
     Route: 048
     Dates: start: 20150415
  19. KLOR-CON M10 [Concomitant]
     Active Substance: POTASSIUM CHLORIDE
     Dosage: 10 MEQ, 1X/DAY
     Route: 048
     Dates: start: 20150406
  20. TYLENOL [Concomitant]
     Active Substance: ACETAMINOPHEN
     Indication: PAIN
     Dosage: 500 MG, AS NEEDED (TAKE 500-1,000 MG EVERY 4 TO 6 HOURS AS NEEDED)
     Route: 048
  21. PROVENTIL [Concomitant]
     Active Substance: ALBUTEROL
     Indication: WHEEZING
  22. DYAZIDE [Concomitant]
     Active Substance: HYDROCHLOROTHIAZIDE\TRIAMTERENE
     Dosage: 1 DF, 1X/DAY (37.5 MG TRIAMTERENE/25 MG HYDROCHLOROTHIAZIDE)
     Route: 048
     Dates: start: 20150406
  23. XALKORI [Suspect]
     Active Substance: CRIZOTINIB
     Indication: NON-SMALL CELL LUNG CANCER
     Dosage: 250 MG, 2X/DAY
     Route: 048
     Dates: start: 20160411
  24. XALKORI [Suspect]
     Active Substance: CRIZOTINIB
     Dosage: 250 MG, 1X/DAY
     Route: 048
     Dates: start: 20160315, end: 20160505
  25. FLOVENT HFA [Concomitant]
     Active Substance: FLUTICASONE PROPIONATE
     Dosage: 220 UG, 2X/DAY (110 MCG/PUFF INHALER, INHALE 2 PUFFS 2 TIMES A DAY)
     Route: 048
     Dates: start: 20160308
  26. VENTOLIN [Concomitant]
     Active Substance: ALBUTEROL SULFATE
     Indication: WHEEZING
  27. SYNALAR [Concomitant]
     Active Substance: FLUOCINOLONE ACETONIDE
     Indication: RASH
     Dosage: UNK, AS NEEDED (0.01 % SOLUTION,APPLY TO AFFECTED AREA 2 TIMES A DAY AS NEEDED)
     Dates: start: 20150406
  28. COENZYME Q10 [Concomitant]
     Active Substance: UBIDECARENONE
     Dosage: 200 MG, 1X/DAY
     Route: 048
  29. CELEXA [Concomitant]
     Active Substance: CITALOPRAM HYDROBROMIDE
     Indication: AFFECTIVE DISORDER
     Dosage: 20 MG, 1X/DAY
     Route: 048
     Dates: start: 20150406
  30. TYLENOL PM [Concomitant]
     Active Substance: ACETAMINOPHEN\DIPHENHYDRAMINE
     Dosage: 1 DF, 1X/DAY (ACETAMINOPHEN 500 MG / DIPHENHYDRAMINE HYDROCHLORIDE 25 MG; EVERY NIGHT AT BEDTIME)
     Route: 048

REACTIONS (3)
  - Dyspnoea [Unknown]
  - Cough [Unknown]
  - Diarrhoea [Unknown]
